FAERS Safety Report 20998933 (Version 2)
Quarter: 2022Q3

REPORT INFORMATION
  Report Type: Spontaneous
  Country: IT (occurrence: IT)
  Receive Date: 20220623
  Receipt Date: 20220708
  Transmission Date: 20221027
  Serious: Yes (Other)
  Sender: FDA-Public Use
  Company Number: IT-TEVA-2022-IT-2047479

PATIENT
  Age: 14 Year
  Sex: Male

DRUGS (10)
  1. CARBOPLATIN [Suspect]
     Active Substance: CARBOPLATIN
     Indication: Metastases to meninges
     Route: 065
  2. CARBOPLATIN [Suspect]
     Active Substance: CARBOPLATIN
     Indication: Glioneuronal tumour
  3. TEMOZOLOMIDE [Suspect]
     Active Substance: TEMOZOLOMIDE
     Indication: Metastases to meninges
     Route: 048
  4. TEMOZOLOMIDE [Suspect]
     Active Substance: TEMOZOLOMIDE
     Indication: Glioneuronal tumour
  5. VINBLASTINE [Suspect]
     Active Substance: VINBLASTINE
     Indication: Metastases to meninges
     Route: 065
  6. VINBLASTINE [Suspect]
     Active Substance: VINBLASTINE
     Indication: Glioneuronal tumour
  7. VINCRISTINE [Suspect]
     Active Substance: VINCRISTINE
     Indication: Metastases to meninges
     Route: 065
  8. VINCRISTINE [Suspect]
     Active Substance: VINCRISTINE
     Indication: Glioneuronal tumour
  9. BEVACIZUMAB [Suspect]
     Active Substance: BEVACIZUMAB
     Indication: Metastases to meninges
     Route: 065
  10. BEVACIZUMAB [Suspect]
     Active Substance: BEVACIZUMAB
     Indication: Glioneuronal tumour

REACTIONS (4)
  - Calcinosis [Unknown]
  - Neurotoxicity [Unknown]
  - Neuropathy peripheral [Unknown]
  - Drug ineffective [Unknown]
